FAERS Safety Report 5953491-9 (Version None)
Quarter: 2008Q4

REPORT INFORMATION
  Report Type: 
  Country: None (occurrence: None)
  Receive Date: 20081114
  Receipt Date: 20081107
  Transmission Date: 20090506
  Serious: Yes (Hospitalization)
  Sender: FDA-Public Use
  Company Number: PL-ROCHE-596379

PATIENT
  Sex: Female
  Weight: 62 kg

DRUGS (1)
  1. BONIVA [Suspect]
     Indication: OSTEOPOROSIS POSTMENOPAUSAL
     Dosage: STRENGTH AND FORMULATION REPORTED AS 3MG/3ML.
     Route: 042
     Dates: start: 20080508, end: 20081106

REACTIONS (2)
  - BONE DISORDER [None]
  - BONE NEOPLASM [None]
